FAERS Safety Report 11484249 (Version 1)
Quarter: 2015Q3

REPORT INFORMATION
  Report Type: Spontaneous
  Country: US (occurrence: US)
  Receive Date: 20150903
  Receipt Date: 20150903
  Transmission Date: 20151125
  Serious: No
  Sender: FDA-Public Use
  Company Number: US-ELI_LILLY_AND_COMPANY-US201204006611

PATIENT
  Sex: Female

DRUGS (2)
  1. CYMBALTA [Suspect]
     Active Substance: DULOXETINE HYDROCHLORIDE
     Indication: FIBROMYALGIA
     Dosage: 60 MG, QD
     Dates: start: 20120123, end: 20120305
  2. MELOXICAM. [Concomitant]
     Active Substance: MELOXICAM

REACTIONS (7)
  - Gingival swelling [Recovering/Resolving]
  - Influenza like illness [Recovering/Resolving]
  - Stomatitis [Recovering/Resolving]
  - Dry mouth [Recovering/Resolving]
  - Somatisation disorder [Unknown]
  - Swollen tongue [Recovering/Resolving]
  - Oral discomfort [Recovering/Resolving]
